FAERS Safety Report 4465845-0 (Version None)
Quarter: 2004Q3

REPORT INFORMATION
  Report Type: 
  Country: None (occurrence: None)
  Receive Date: 20040930
  Receipt Date: 20040930
  Transmission Date: 20050211
  Serious: Yes (Hospitalization)
  Sender: FDA-Public Use
  Company Number: None

PATIENT
  Age: 13 Year
  Sex: Male
  Weight: 44.8 kg

DRUGS (4)
  1. ABACAVIR [Suspect]
     Indication: HIV INFECTION
     Dosage: 300 MG PO BID
     Route: 048
     Dates: start: 20040719, end: 20040803
  2. LAMIVUDINE [Concomitant]
  3. NELFINAVIR [Concomitant]
  4. LOPINAVIR/RITONAVIR [Concomitant]

REACTIONS (12)
  - CONJUNCTIVAL HYPERAEMIA [None]
  - DIZZINESS [None]
  - DRUG HYPERSENSITIVITY [None]
  - EMOTIONAL DISTRESS [None]
  - HEADACHE [None]
  - HYPOTENSION [None]
  - MYALGIA [None]
  - NAUSEA [None]
  - RASH GENERALISED [None]
  - RASH MACULO-PAPULAR [None]
  - RASH PRURITIC [None]
  - VOMITING [None]
